FAERS Safety Report 12201575 (Version 1)
Quarter: 2016Q1

REPORT INFORMATION
  Report Type: Spontaneous
  Country: US (occurrence: US)
  Receive Date: 20160322
  Receipt Date: 20160322
  Transmission Date: 20160526
  Serious: No
  Sender: FDA-Public Use
  Company Number: US-SA-2015SA106959

PATIENT
  Sex: Female

DRUGS (1)
  1. NASACORT ALLERGY 24HR [Suspect]
     Active Substance: TRIAMCINOLONE ACETONIDE
     Indication: MIDDLE EAR EFFUSION
     Dosage: FREQUENCY: NOT USING DAILY, START IT FROM 1 WEEK AGO,DOSE NASACORT 60 SPRAY
     Route: 065

REACTIONS (2)
  - Tension headache [Unknown]
  - Drug ineffective [Unknown]
